FAERS Safety Report 5311376-5 (Version None)
Quarter: 2007Q2

REPORT INFORMATION
  Report Type: 
  Country: None (occurrence: None)
  Receive Date: 20070430
  Receipt Date: 20070417
  Transmission Date: 20071010
  Serious: Yes (Other)
  Sender: FDA-Public Use
  Company Number: PHBS2007IT06900

PATIENT
  Age: 83 Year
  Sex: Male

DRUGS (3)
  1. LESCOL [Suspect]
     Indication: DYSLIPIDAEMIA
     Dosage: 80 MG/D
     Route: 048
     Dates: start: 20020531, end: 20070320
  2. LOMIR [Concomitant]
     Route: 048
  3. SELENIUM SULFIDE [Suspect]
     Dosage: 380 MG/D
     Route: 048
     Dates: start: 20070302

REACTIONS (2)
  - ARRHYTHMIA [None]
  - EXTRASYSTOLES [None]
